FAERS Safety Report 15723937 (Version 9)
Quarter: 2019Q3

REPORT INFORMATION
  Report Type: Report from Study
  Country: CA (occurrence: CA)
  Receive Date: 20181214
  Receipt Date: 20190716
  Transmission Date: 20191004
  Serious: Yes (Hospitalization, Other)
  Sender: FDA-Public Use
  Company Number: CA-ROCHE-2161050

PATIENT
  Age: 71 Year
  Sex: Male
  Weight: 79.5 kg

DRUGS (5)
  1. ATEZOLIZUMAB. [Suspect]
     Active Substance: ATEZOLIZUMAB
     Indication: BLADDER CANCER
     Dosage: ON 23/JUL/2018 AT 14:16, HE RECEIVED THE MOST RECENT DOSE OF ATEZOLIZUMAB PRIOR TO EVENT ONSET.?ON 0
     Route: 042
     Dates: start: 20180412
  2. PERINDOPRIL [Concomitant]
     Active Substance: PERINDOPRIL
     Indication: HYPERTENSION
     Route: 048
     Dates: start: 2014
  3. DALTEPARIN [Concomitant]
     Active Substance: DALTEPARIN
     Dosage: DOSE: 5000 U
     Route: 048
     Dates: start: 20180726, end: 20180727
  4. SENOKOT [Concomitant]
     Active Substance: SENNOSIDES
     Indication: CONSTIPATION
     Route: 048
     Dates: start: 20180201
  5. LIPITOR [Concomitant]
     Active Substance: ATORVASTATIN CALCIUM
     Indication: HYPERCHOLESTEROLAEMIA
     Route: 048
     Dates: start: 2014

REACTIONS (4)
  - Autoimmune hepatitis [Recovered/Resolved]
  - Pain in extremity [Recovered/Resolved]
  - Musculoskeletal pain [Recovered/Resolved]
  - Immune-mediated pneumonitis [Not Recovered/Not Resolved]

NARRATIVE: CASE EVENT DATE: 20180704
